FAERS Safety Report 8234698-7 (Version None)
Quarter: 2012Q1

REPORT INFORMATION
  Report Type: 
  Country: None (occurrence: None)
  Receive Date: 20120307
  Receipt Date: 20090929
  Transmission Date: 20120608
  Serious: Yes (Hospitalization, Other)
  Sender: FDA-Public Use
  Company Number: PHEH2009US12434

PATIENT
  Age: 72 Year
  Sex: Male

DRUGS (1)
  1. AFINITOR [Suspect]
     Dosage: 10 MG

REACTIONS (7)
  - COUGH [None]
  - DIARRHOEA [None]
  - DYSPNOEA [None]
  - CARDIAC FAILURE [None]
  - NAUSEA [None]
  - MUSCULAR WEAKNESS [None]
  - RESPIRATORY FAILURE [None]
